FAERS Safety Report 11149063 (Version 1)
Quarter: 2015Q2

REPORT INFORMATION
  Report Type: Spontaneous
  Country: US (occurrence: None)
  Receive Date: 20150528
  Receipt Date: 20150528
  Transmission Date: 20150821
  Serious: No
  Sender: FDA-Public Use
  Company Number: None

PATIENT
  Age: 30 Year
  Sex: Female
  Weight: 52.16 kg

DRUGS (4)
  1. LO LOESTRIN FE [Suspect]
     Active Substance: ETHINYL ESTRADIOL\NORETHINDRONE ACETATE
     Indication: CONTRACEPTION
     Route: 048
     Dates: start: 20120501, end: 20150501
  2. DYMISTA [Concomitant]
     Active Substance: AZELASTINE HYDROCHLORIDE\FLUTICASONE PROPIONATE
  3. LO LOESTRIN FE [Concomitant]
     Active Substance: ETHINYL ESTRADIOL\NORETHINDRONE ACETATE
  4. CLARINEX [Concomitant]
     Active Substance: DESLORATADINE

REACTIONS (9)
  - Blood cortisol increased [None]
  - Mood swings [None]
  - Suicidal ideation [None]
  - Weight increased [None]
  - Abdominal distension [None]
  - Hypoglycaemia [None]
  - Depression [None]
  - Condition aggravated [None]
  - Premenstrual dysphoric disorder [None]

NARRATIVE: CASE EVENT DATE: 20150527
